FAERS Safety Report 7362291-7 (Version None)
Quarter: 2011Q1

REPORT INFORMATION
  Report Type: 
  Country: None (occurrence: None)
  Receive Date: 20110318
  Receipt Date: 20110308
  Transmission Date: 20110831
  Serious: Yes (Hospitalization)
  Sender: FDA-Public Use
  Company Number: US-JNJFOC-20101006552

PATIENT
  Sex: Female
  Weight: 36.4 kg

DRUGS (6)
  1. MEFOXIN [Concomitant]
  2. PREDNISONE [Concomitant]
  3. REMICADE [Suspect]
     Indication: INFLAMMATORY BOWEL DISEASE
     Dosage: 3RD DOSE
     Route: 042
  4. REMICADE [Suspect]
     Dosage: 1ST DOSE
     Route: 042
  5. REMICADE [Suspect]
     Dosage: 2ND DOSE
     Route: 042
  6. AZATHIOPRINE [Concomitant]

REACTIONS (1)
  - SMALL INTESTINAL OBSTRUCTION [None]
